FAERS Safety Report 5741029-0 (Version None)
Quarter: 2008Q2

REPORT INFORMATION
  Report Type: 
  Country: None (occurrence: None)
  Receive Date: 20080513
  Receipt Date: 20080502
  Transmission Date: 20081010
  Serious: Yes (Life-Threatening, Hospitalization)
  Sender: FDA-Public Use
  Company Number: 056-20785-08040537

PATIENT
  Age: 66 Year
  Sex: Male
  Weight: 63 kg

DRUGS (7)
  1. THALIDOMIDE [Suspect]
     Indication: MULTIPLE MYELOMA
     Dosage: 100 MG, DAILY, ORAL : 100 MG, DAILY, ORAL
     Route: 048
     Dates: start: 20080215, end: 20080320
  2. THALIDOMIDE [Suspect]
     Indication: MULTIPLE MYELOMA
     Dosage: 100 MG, DAILY, ORAL : 100 MG, DAILY, ORAL
     Route: 048
     Dates: start: 20080402
  3. DEXAMETHASONE TAB [Concomitant]
  4. BACTRIM [Concomitant]
  5. LYTHOS         (BISPHOSPHONATES) [Concomitant]
  6. EPREX [Concomitant]
  7. VALACYCLOVIR HCL [Concomitant]

REACTIONS (3)
  - BRADYCARDIA [None]
  - HYPERSENSITIVITY [None]
  - INTERSTITIAL LUNG DISEASE [None]
